FAERS Safety Report 10841239 (Version 1)
Quarter: 2015Q1

REPORT INFORMATION
  Report Type: Spontaneous
  Country: CA (occurrence: CA)
  Receive Date: 20150220
  Receipt Date: 20150220
  Transmission Date: 20150721
  Serious: Yes (Other)
  Sender: FDA-Public Use
  Company Number: CA-JNJFOC-20150212846

PATIENT
  Age: 71 Year
  Sex: Male
  Weight: 63.5 kg

DRUGS (2)
  1. BENADRYL NIGHTIME EXTRA STRENGTH ALLERGY CAPLETS [Suspect]
     Active Substance: DIPHENHYDRAMINE HYDROCHLORIDE
     Indication: PRURITUS
     Route: 048
     Dates: start: 20150123, end: 20150123
  2. BENADRYL NIGHTIME EXTRA STRENGTH ALLERGY CAPLETS [Suspect]
     Active Substance: DIPHENHYDRAMINE HYDROCHLORIDE
     Indication: URTICARIA
     Route: 048
     Dates: start: 20150123, end: 20150123

REACTIONS (2)
  - Myocardial infarction [Unknown]
  - Feeling cold [Unknown]

NARRATIVE: CASE EVENT DATE: 20150123
